FAERS Safety Report 14009216 (Version 2)
Quarter: 2017Q3

REPORT INFORMATION
  Report Type: Spontaneous
  Country: SI (occurrence: SI)
  Receive Date: 20170925
  Receipt Date: 20170925
  Transmission Date: 20171128
  Serious: Yes (Hospitalization)
  Sender: FDA-Public Use
  Company Number: PHHY2017SI139163

PATIENT
  Age: 63 Year
  Sex: Male

DRUGS (57)
  1. RANOLAZINA [Suspect]
     Active Substance: RANOLAZINE
     Dosage: 2 X 500 MG
     Route: 065
     Dates: start: 2017
  2. RANOLAZINA [Suspect]
     Active Substance: RANOLAZINE
     Dosage: 2 X 500 MG
     Route: 065
     Dates: start: 201706
  3. BISOPROLOL [Suspect]
     Active Substance: BISOPROLOL
     Dosage: 2.5 MG, UNK
     Route: 065
     Dates: start: 201707
  4. EPLERENONE. [Suspect]
     Active Substance: EPLERENONE
     Dosage: 25 MG, UNK
     Route: 065
     Dates: start: 201707
  5. TELMISARTAN. [Suspect]
     Active Substance: TELMISARTAN
     Indication: CARDIAC FAILURE
     Dosage: 40 MG, UNK
     Route: 065
     Dates: start: 2015
  6. ENTRESTO [Suspect]
     Active Substance: SACUBITRIL\VALSARTAN
     Dosage: 49/51 MGUNK
     Route: 065
     Dates: start: 201706
  7. CORDARONE [Suspect]
     Active Substance: AMIODARONE HYDROCHLORIDE
     Indication: CARDIAC FAILURE
     Dosage: 200 MG, UNK
     Route: 065
     Dates: start: 2010
  8. RANOLAZINA [Suspect]
     Active Substance: RANOLAZINE
     Dosage: 2 X 500 MG
     Route: 065
     Dates: start: 201707
  9. BISOPROLOL [Suspect]
     Active Substance: BISOPROLOL
     Dosage: 2.5 MG, UNK
     Route: 065
     Dates: start: 2017
  10. FUROSEMIDE. [Suspect]
     Active Substance: FUROSEMIDE
     Dosage: 20 MG, UNK
     Route: 065
     Dates: start: 201708
  11. ENTRESTO [Suspect]
     Active Substance: SACUBITRIL\VALSARTAN
     Indication: CARDIAC FAILURE
     Dosage: 2X24/26 MG
     Route: 065
     Dates: start: 2017
  12. ENTRESTO [Suspect]
     Active Substance: SACUBITRIL\VALSARTAN
     Dosage: 49/51 MGUNK
     Route: 065
     Dates: start: 201707
  13. RANOLAZINA [Suspect]
     Active Substance: RANOLAZINE
     Indication: CARDIAC FAILURE
     Dosage: 2 X 500 MG
     Route: 065
     Dates: start: 2015
  14. RANOLAZINA [Suspect]
     Active Substance: RANOLAZINE
     Dosage: 2 X 500 MG
     Route: 065
     Dates: start: 201708
  15. BISOPROLOL [Suspect]
     Active Substance: BISOPROLOL
     Dosage: 2X5 MG
     Route: 065
     Dates: start: 2015
  16. ENTRESTO [Suspect]
     Active Substance: SACUBITRIL\VALSARTAN
     Dosage: 2X24/26 MG
     Route: 065
     Dates: start: 201705
  17. ENTRESTO [Suspect]
     Active Substance: SACUBITRIL\VALSARTAN
     Dosage: 49/51 MG, 2X1
     Route: 065
     Dates: start: 201708
  18. CORDARONE [Suspect]
     Active Substance: AMIODARONE HYDROCHLORIDE
     Dosage: 200 MG, UNK
     Route: 065
     Dates: start: 2014
  19. LEVOSIMENDAN [Suspect]
     Active Substance: LEVOSIMENDAN
     Indication: CARDIAC FAILURE
     Dosage: UNK
     Route: 065
  20. BISOPROLOL [Suspect]
     Active Substance: BISOPROLOL
     Dosage: 2.5 MG, UNK
     Route: 065
     Dates: start: 201708
  21. ATORVASTATIN [Suspect]
     Active Substance: ATORVASTATIN
     Dosage: 20 MG, UNK
     Route: 065
     Dates: start: 2015
  22. FUROSEMIDE. [Suspect]
     Active Substance: FUROSEMIDE
     Indication: CARDIAC FAILURE
     Dosage: 40 MG, UNK
     Route: 065
     Dates: start: 2014
  23. FUROSEMIDE. [Suspect]
     Active Substance: FUROSEMIDE
     Dosage: 40 MG, UNK
     Route: 065
     Dates: start: 201706
  24. SPIRONOLACTONE. [Suspect]
     Active Substance: SPIRONOLACTONE
     Indication: CARDIAC FAILURE
     Dosage: 25 MG, Q48H
     Route: 065
     Dates: start: 2010
  25. CORDARONE [Suspect]
     Active Substance: AMIODARONE HYDROCHLORIDE
     Dosage: 200 MG, UNK
     Route: 065
     Dates: start: 2017
  26. RANOLAZINA [Suspect]
     Active Substance: RANOLAZINE
     Dosage: 2 X 500 MG
     Route: 065
     Dates: start: 201705
  27. BISOPROLOL [Suspect]
     Active Substance: BISOPROLOL
     Indication: CARDIAC FAILURE
     Dosage: 2.5 MG, UNK
     Route: 065
     Dates: start: 2010
  28. PERINDOPRIL [Suspect]
     Active Substance: PERINDOPRIL
     Indication: CARDIAC FAILURE
     Dosage: 4 MG, UNK
     Route: 065
     Dates: start: 2010
  29. PERINDOPRIL [Suspect]
     Active Substance: PERINDOPRIL
     Dosage: 8 MG, QD
     Route: 065
     Dates: start: 2012
  30. ATORVASTATIN [Suspect]
     Active Substance: ATORVASTATIN
     Indication: CARDIAC FAILURE
     Dosage: 20 MG, UNK
     Route: 065
     Dates: start: 2010
  31. ATORVASTATIN [Suspect]
     Active Substance: ATORVASTATIN
     Dosage: 20 MG, UNK
     Route: 065
     Dates: start: 2014
  32. FUROSEMIDE. [Suspect]
     Active Substance: FUROSEMIDE
     Dosage: 125 MG, UNK
     Route: 065
     Dates: start: 2015
  33. FUROSEMIDE. [Suspect]
     Active Substance: FUROSEMIDE
     Dosage: 250 + 125 MG
     Route: 065
     Dates: start: 2016
  34. FUROSEMIDE. [Suspect]
     Active Substance: FUROSEMIDE
     Dosage: 40 MG, UNK
     Route: 065
     Dates: start: 2017
  35. EPLERENONE. [Suspect]
     Active Substance: EPLERENONE
     Dosage: 25 MG, UNK
     Route: 065
     Dates: start: 2015
  36. EPLERENONE. [Suspect]
     Active Substance: EPLERENONE
     Dosage: 50 UNK, UNK
     Route: 065
     Dates: start: 2016
  37. EPLERENONE. [Suspect]
     Active Substance: EPLERENONE
     Dosage: 25 MG, UNK
     Route: 065
     Dates: start: 201705
  38. EPLERENONE. [Suspect]
     Active Substance: EPLERENONE
     Dosage: 25 MG, UNK
     Route: 065
     Dates: start: 201708
  39. SPIRONOLACTONE. [Suspect]
     Active Substance: SPIRONOLACTONE
     Dosage: 25 MG, QD
     Route: 065
     Dates: start: 2012
  40. CORDARONE [Suspect]
     Active Substance: AMIODARONE HYDROCHLORIDE
     Dosage: 200 MG, UNK
     Route: 065
     Dates: start: 201708
  41. FUROSEMIDE. [Suspect]
     Active Substance: FUROSEMIDE
     Dosage: 40 MG, UNK
     Route: 065
     Dates: start: 201705
  42. FUROSEMIDE. [Suspect]
     Active Substance: FUROSEMIDE
     Dosage: 40 MG, UNK
     Route: 065
     Dates: start: 201707
  43. EPLERENONE. [Suspect]
     Active Substance: EPLERENONE
     Indication: CARDIAC FAILURE
     Dosage: 25 MG, UNK
     Route: 065
     Dates: start: 2014
  44. ENTRESTO [Suspect]
     Active Substance: SACUBITRIL\VALSARTAN
     Dosage: 97/103
     Route: 065
     Dates: start: 201708
  45. CORDARONE [Suspect]
     Active Substance: AMIODARONE HYDROCHLORIDE
     Dosage: 200 MG, UNK
     Route: 065
     Dates: start: 2015
  46. BISOPROLOL [Suspect]
     Active Substance: BISOPROLOL
     Dosage: 2.5 MG, UNK
     Route: 065
     Dates: start: 201706
  47. FUROSEMIDE. [Suspect]
     Active Substance: FUROSEMIDE
     Dosage: 20 MG, UNK
     Route: 065
     Dates: start: 201707
  48. CORDARONE [Suspect]
     Active Substance: AMIODARONE HYDROCHLORIDE
     Dosage: 200 MG, UNK
     Route: 065
     Dates: start: 201705
  49. CORDARONE [Suspect]
     Active Substance: AMIODARONE HYDROCHLORIDE
     Dosage: 200 MG, UNK
     Route: 065
     Dates: start: 201706
  50. CORDARONE [Suspect]
     Active Substance: AMIODARONE HYDROCHLORIDE
     Dosage: 200 MG, UNK
     Route: 065
     Dates: start: 201707
  51. BISOPROLOL [Suspect]
     Active Substance: BISOPROLOL
     Dosage: 2X5 MG
     Route: 065
     Dates: start: 2014
  52. BISOPROLOL [Suspect]
     Active Substance: BISOPROLOL
     Dosage: 2.5 MG, UNK
     Route: 065
     Dates: start: 201705
  53. PERINDOPRIL [Suspect]
     Active Substance: PERINDOPRIL
     Dosage: 4 MG, UNK
     Route: 065
     Dates: start: 2014
  54. EPLERENONE. [Suspect]
     Active Substance: EPLERENONE
     Dosage: 25 MG, UNK
     Route: 065
     Dates: start: 2017
  55. EPLERENONE. [Suspect]
     Active Substance: EPLERENONE
     Dosage: 25 MG, UNK
     Route: 065
     Dates: start: 201706
  56. ENTRESTO [Suspect]
     Active Substance: SACUBITRIL\VALSARTAN
     Dosage: 2X24/51 MG
     Route: 065
     Dates: start: 201705
  57. ENTRESTO [Suspect]
     Active Substance: SACUBITRIL\VALSARTAN
     Dosage: 49/51 MGUNK
     Route: 065
     Dates: start: 201706

REACTIONS (9)
  - Tachypnoea [Unknown]
  - Dizziness [Recovered/Resolved]
  - Hypotension [Unknown]
  - Cardiac failure congestive [Unknown]
  - Corneal deposits [Unknown]
  - General physical condition abnormal [Unknown]
  - Rales [Unknown]
  - Pacemaker generated arrhythmia [Unknown]
  - Acute kidney injury [Unknown]
